FAERS Safety Report 9242240 (Version 2)
Quarter: 2013Q2

REPORT INFORMATION
  Report Type: Report from Study
  Country: US (occurrence: US)
  Receive Date: 20130419
  Receipt Date: 20130530
  Transmission Date: 20140414
  Serious: Yes (Hospitalization)
  Sender: FDA-Public Use
  Company Number: US-VERTEX PHARMACEUTICALS INC.-2013-005024

PATIENT
  Age: 12 Year
  Sex: Female

DRUGS (21)
  1. VX-770 [Suspect]
     Indication: CYSTIC FIBROSIS
     Dosage: 150 MG, BID
     Dates: start: 20120229
  2. DIAZEPAM [Concomitant]
     Indication: CONVULSION
     Dosage: 10 MG, PRN
     Route: 054
  3. FLUTICASONE [Concomitant]
     Dosage: 1 DF, QD
     Route: 045
  4. BRIGHT BEGINNINGS [Concomitant]
     Route: 048
  5. CALCIUM [Concomitant]
     Dosage: 500 MG, QD
     Route: 048
  6. FLOVENT [Concomitant]
     Dosage: 2 DF, BID
     Route: 055
  7. ALBUTEROL [Concomitant]
  8. TOPAMAX [Concomitant]
     Dosage: 100 MG, BID
     Route: 048
  9. DITROPAN XL [Concomitant]
     Dosage: 10 MG, QD
     Route: 048
  10. LANSOPRAZOLE [Concomitant]
     Dosage: 15 MG, BID
     Route: 048
  11. AZITHROMYCIN [Concomitant]
     Dosage: 250 MG, UNK
  12. VITAMIN D3 [Concomitant]
     Dosage: 4000 IU, QD
     Route: 048
  13. CREON [Concomitant]
     Route: 048
  14. RANITIDE [Concomitant]
     Dosage: 75 MG, BID
     Route: 048
  15. CETIRIZINE [Concomitant]
     Dosage: 10 MG, QD
     Route: 048
  16. ADEKS [Concomitant]
     Dosage: 1 DF, QD
     Route: 048
  17. HYOSCYAMINE [Concomitant]
     Dosage: 0.5 DF, TID
     Route: 048
  18. SODIUM CHLORIDE [Concomitant]
     Dosage: 4 ML, BID
     Route: 055
  19. DORNASE ALFA [Concomitant]
     Dosage: 2.5 ML, QD
     Route: 055
  20. OMNICEF [Concomitant]
     Dosage: 300 MG, BID
     Route: 048
  21. POLYETHYLENE GLYCOL [Concomitant]
     Dosage: 17 G, QD
     Route: 048

REACTIONS (2)
  - Gastrointestinal disorder [Recovered/Resolved]
  - Infective pulmonary exacerbation of cystic fibrosis [Recovered/Resolved]
